FAERS Safety Report 25028524 (Version 2)
Quarter: 2025Q1

REPORT INFORMATION
  Report Type: Spontaneous
  Country: US (occurrence: US)
  Receive Date: 20250302
  Receipt Date: 20250325
  Transmission Date: 20250408
  Serious: No
  Sender: SANOFI AVENTIS
  Company Number: US-SA-2025SA059183

PATIENT
  Age: 27 Year
  Sex: Male

DRUGS (1)
  1. DUPIXENT [Suspect]
     Active Substance: DUPILUMAB
     Indication: Asthma
     Dosage: 200 MG, QOW
     Route: 058
     Dates: start: 202501

REACTIONS (5)
  - Epistaxis [Unknown]
  - Condition aggravated [Unknown]
  - Nasal dryness [Unknown]
  - Headache [Unknown]
  - Asthma [Unknown]

NARRATIVE: CASE EVENT DATE: 20250101
